FAERS Safety Report 7383341-8 (Version None)
Quarter: 2011Q1

REPORT INFORMATION
  Report Type: 
  Country: None (occurrence: None)
  Receive Date: 20110325
  Receipt Date: 20110325
  Transmission Date: 20110831
  Serious: Yes (Hospitalization)
  Sender: FDA-Public Use
  Company Number: None

PATIENT
  Age: 90 Year
  Sex: Female
  Weight: 73.5 kg

DRUGS (4)
  1. CARVEDILOL [Suspect]
     Indication: HYPERTENSION
     Dosage: 12.5MG DAILY PO CHRONIC
     Route: 048
  2. NITROGLYCERIN [Concomitant]
  3. TOPROL-XL [Suspect]
     Indication: HYPERTENSION
     Dosage: 100MG DAILY PO CHRONIC
     Route: 048
  4. FEMARA [Concomitant]

REACTIONS (3)
  - PRESYNCOPE [None]
  - NODAL RHYTHM [None]
  - BRADYCARDIA [None]
